FAERS Safety Report 13257117 (Version 4)
Quarter: 2017Q1

REPORT INFORMATION
  Report Type: Report from Study
  Country: CA (occurrence: CA)
  Receive Date: 20170221
  Receipt Date: 20170309
  Transmission Date: 20170428
  Serious: Yes (Hospitalization, Other)
  Sender: FDA-Public Use
  Company Number: CA-TEVA-741171ACC

PATIENT
  Age: 29 Year
  Sex: Female

DRUGS (1)
  1. COPAXONE [Suspect]
     Active Substance: GLATIRAMER ACETATE
     Indication: MULTIPLE SCLEROSIS
     Dosage: 20 MILLIGRAM/MILLILITERS DAILY;
     Route: 058
     Dates: start: 20160509, end: 20170210

REACTIONS (9)
  - Hypersensitivity [Unknown]
  - Vision blurred [Unknown]
  - Throat tightness [Unknown]
  - Eyelid oedema [Unknown]
  - Swollen tongue [Unknown]
  - Feeling abnormal [Unknown]
  - Palpitations [Unknown]
  - Cyanosis [Unknown]
  - Erythema [Unknown]

NARRATIVE: CASE EVENT DATE: 20170210
